FAERS Safety Report 8201488-0 (Version None)
Quarter: 2012Q1

REPORT INFORMATION
  Report Type: 
  Country: None (occurrence: None)
  Receive Date: 20120307
  Receipt Date: 20120220
  Transmission Date: 20120608
  Serious: Yes (Life-Threatening)
  Sender: FDA-Public Use
  Company Number: THQ2012A00747

PATIENT
  Age: 78 Year
  Sex: Male

DRUGS (30)
  1. NIFEDIPINE [Concomitant]
  2. CAPTOPRIL [Concomitant]
  3. CAPTOPRIL [Concomitant]
  4. AMLODIPINE [Concomitant]
  5. SULODEXIDE [Concomitant]
  6. DOMPERIDONE [Concomitant]
  7. ALPHA LIPOIC ACID (THIOCTIC ACID) [Concomitant]
  8. ALDACTONE [Concomitant]
  9. ULTRALENTE INSULIN (INSULIN ZINC SUSPENSION) [Concomitant]
  10. TICLOPIDINE (TICLOPIDINE HYDROCHLORIDE) [Concomitant]
  11. ISOPHANE INSULIN [Concomitant]
  12. ISOSORBIDE DINITRATE [Concomitant]
  13. ACARBOSE [Concomitant]
  14. PREVACID FDT (LANSOPRAZOLE) [Concomitant]
  15. GLICLAZIDE [Concomitant]
  16. METOFORMIN (METFORMIN HYDROCHLORIDE) [Concomitant]
  17. QUINAPRIL [Concomitant]
  18. CINNARIZINE [Concomitant]
  19. BASEN (VOGLIBOSE) [Concomitant]
  20. BLOPRESS (CANDESARTAN) [Concomitant]
  21. CLONIDINE [Concomitant]
  22. KETO-ANALOGUE (ALL OTHER THERAPEUTIC PRODUCTS) [Concomitant]
  23. ACTOS [Suspect]
     Indication: TYPE 2 DIABETES MELLITUS
     Dosage: 30 MG (30 MG, 1 IN 1 D)
     Route: 048
     Dates: start: 20051116, end: 20100506
  24. VIT B COMPLEX (VITAMIN-B-KOMPLEX STANDARD) [Concomitant]
  25. ISOSORBIDE MONONITRATE [Concomitant]
  26. BUMETANIDE [Concomitant]
  27. REGULAR INSULIN [Concomitant]
  28. FENOFIBRATE [Concomitant]
  29. CILOSTAZOL [Concomitant]
  30. TELMISARTAN + HCTZ (HYDROCHLOROTHIAZIDE, TELMISARTAN) [Concomitant]

REACTIONS (4)
  - OEDEMA [None]
  - BLADDER MASS [None]
  - HAEMATURIA [None]
  - TRANSITIONAL CELL CARCINOMA [None]
